FAERS Safety Report 15115911 (Version 9)
Quarter: 2019Q3

REPORT INFORMATION
  Report Type: Spontaneous
  Country: BR (occurrence: BR)
  Receive Date: 20180706
  Receipt Date: 20190724
  Transmission Date: 20191004
  Serious: Yes (Hospitalization, Other)
  Sender: FDA-Public Use
  Company Number: BR-GLAXOSMITHKLINE-BR2016GSK035846

PATIENT
  Sex: Male
  Weight: 97 kg

DRUGS (8)
  1. BENLYSTA [Suspect]
     Active Substance: BELIMUMAB
     Dosage: 800 MG, UNK
  2. PREDNISONE. [Concomitant]
     Active Substance: PREDNISONE
     Indication: PRODUCT USED FOR UNKNOWN INDICATION
     Dosage: 5 MG, BID
     Dates: start: 2014
  3. REUQUINOL [Concomitant]
     Active Substance: HYDROXYCHLOROQUINE SULFATE
     Indication: PRODUCT USED FOR UNKNOWN INDICATION
     Dosage: 400 MG, QD
  4. HYDROXYCHLOROQUINE SULFATE. [Concomitant]
     Active Substance: HYDROXYCHLOROQUINE SULFATE
     Indication: PRODUCT USED FOR UNKNOWN INDICATION
     Dosage: UNK
  5. BENLYSTA [Suspect]
     Active Substance: BELIMUMAB
     Indication: SYSTEMIC LUPUS ERYTHEMATOSUS
     Dosage: 400 MG, UNK
     Dates: start: 20160223
  6. PLAQUINOL [Concomitant]
     Active Substance: HYDROXYCHLOROQUINE SULFATE
     Indication: PRODUCT USED FOR UNKNOWN INDICATION
     Dosage: 400 MG, QD
  7. PREDNISONE. [Concomitant]
     Active Substance: PREDNISONE
     Dosage: 20 MG, UNK
  8. AZATHIOPRINE. [Concomitant]
     Active Substance: AZATHIOPRINE
     Indication: PRODUCT USED FOR UNKNOWN INDICATION
     Dosage: UNK

REACTIONS (21)
  - Joint swelling [Unknown]
  - Pain in extremity [Unknown]
  - Hyperhidrosis [Unknown]
  - Asthenia [Unknown]
  - Platelet count decreased [Not Recovered/Not Resolved]
  - Gingival bleeding [Recovered/Resolved]
  - Influenza [Unknown]
  - Haemorrhage [Unknown]
  - Headache [Unknown]
  - Inappropriate schedule of product administration [Recovered/Resolved]
  - Epistaxis [Unknown]
  - Weight increased [Unknown]
  - Feeling hot [Unknown]
  - Therapeutic response unexpected [Unknown]
  - Product dose omission [Recovered/Resolved]
  - Diarrhoea [Unknown]
  - Underdose [Not Recovered/Not Resolved]
  - Product availability issue [Unknown]
  - Mouth haemorrhage [Unknown]
  - Tooth pulp haemorrhage [Recovered/Resolved]
  - Circumstance or information capable of leading to medication error [Unknown]
